FAERS Safety Report 9630164 (Version 1)
Quarter: 2013Q4

REPORT INFORMATION
  Report Type: Report from Study
  Country: BR (occurrence: BR)
  Receive Date: 20131017
  Receipt Date: 20131017
  Transmission Date: 20140711
  Serious: Yes (Other)
  Sender: FDA-Public Use
  Company Number: PHHY2013BR116805

PATIENT
  Sex: Male

DRUGS (2)
  1. RASILEZ AMLO [Suspect]
     Indication: HYPERTENSION
     Dosage: 300/5 MG, QD (ONCE AT BREAKFAST)
  2. HIGROTON [Suspect]
     Indication: HYPERTENSION
     Dosage: 25 MG, QD (ONCE AT BREAKFAST)

REACTIONS (2)
  - Malaise [Unknown]
  - Nausea [Not Recovered/Not Resolved]
